FAERS Safety Report 6305532-7 (Version None)
Quarter: 2009Q3

REPORT INFORMATION
  Report Type: 
  Country: None (occurrence: None)
  Receive Date: 20090807
  Receipt Date: 20090730
  Transmission Date: 20100115
  Serious: Yes (Other)
  Sender: FDA-Public Use
  Company Number: 2009SP017467

PATIENT
  Age: 51 Year
  Sex: Male

DRUGS (4)
  1. TEMODAL [Suspect]
     Indication: MEDULLOBLASTOMA RECURRENT
  2. TANGANIL [Concomitant]
  3. NAVOBAN [Concomitant]
  4. DEMECLOCYCLINE HCL [Concomitant]

REACTIONS (1)
  - CYTOLYTIC HEPATITIS [None]
